FAERS Safety Report 8813901 (Version 2)
Quarter: 2015Q2

REPORT INFORMATION
  Report Type: Report from Study
  Country: US (occurrence: US)
  Receive Date: 20120928
  Receipt Date: 20150408
  Transmission Date: 20150821
  Serious: Yes (Death)
  Sender: FDA-Public Use
  Company Number: US-ROCHE-1129520

PATIENT
  Sex: Female

DRUGS (20)
  1. HERCEPTIN [Suspect]
     Active Substance: TRASTUZUMAB
     Indication: BREAST CANCER FEMALE
     Dosage: IN NS 500 ML
     Route: 042
  2. ROXANOL [Concomitant]
     Active Substance: MORPHINE SULFATE
     Route: 048
  3. COMPAZINE [Concomitant]
     Active Substance: PROCHLORPERAZINE MALEATE
     Route: 048
  4. PALONOSETRON HYDROCHLORIDE [Concomitant]
     Active Substance: PALONOSETRON HYDROCHLORIDE
     Route: 042
  5. OXYCONTIN [Concomitant]
     Active Substance: OXYCODONE HYDROCHLORIDE
     Route: 048
  6. ZOLEDRONIC ACID [Concomitant]
     Active Substance: ZOLEDRONIC ACID
     Dosage: DAILY SHOT OVER 30 MIN FOR 1 DAY IN NS 100 ML
     Route: 042
  7. HERCEPTIN [Suspect]
     Active Substance: TRASTUZUMAB
     Indication: BONE CANCER
  8. PACLITAXEL ALBUMIN [Concomitant]
     Active Substance: PACLITAXEL
     Route: 042
  9. TAMOXIFEN CITRATE. [Concomitant]
     Active Substance: TAMOXIFEN CITRATE
     Route: 048
  10. FEMARA [Concomitant]
     Active Substance: LETROZOLE
     Route: 048
  11. LOVENOX [Concomitant]
     Active Substance: ENOXAPARIN SODIUM
  12. DIPHENHYDRAMINE [Concomitant]
     Active Substance: DIPHENHYDRAMINE
     Dosage: DAILY SHOTS FOR 1 DAY IN NS 50 ML
     Route: 042
  13. ABRAXANE [Concomitant]
     Active Substance: PACLITAXEL
  14. FASLODEX [Concomitant]
     Active Substance: FULVESTRANT
  15. DEXAMETHASONE. [Concomitant]
     Active Substance: DEXAMETHASONE
     Route: 042
  16. ZOMETA [Concomitant]
     Active Substance: ZOLEDRONIC ACID
  17. COUMADIN [Concomitant]
     Active Substance: WARFARIN SODIUM
  18. ATIVAN [Concomitant]
     Active Substance: LORAZEPAM
     Route: 048
  19. COMPAZINE [Concomitant]
     Active Substance: PROCHLORPERAZINE MALEATE
     Route: 054
  20. FULVESTRANT [Concomitant]
     Active Substance: FULVESTRANT
     Route: 065

REACTIONS (10)
  - Death [Fatal]
  - Nausea [Unknown]
  - Depression [Unknown]
  - Vomiting [Unknown]
  - Pulmonary embolism [Unknown]
  - Fatigue [Unknown]
  - Red blood cell count decreased [Unknown]
  - Back pain [Unknown]
  - Platelet count decreased [Unknown]
  - Hypotension [Unknown]
